FAERS Safety Report 8087396-7 (Version None)
Quarter: 2012Q1

REPORT INFORMATION
  Report Type: 
  Country: None (occurrence: None)
  Receive Date: 20120128
  Receipt Date: 20110506
  Transmission Date: 20120608
  Serious: No
  Sender: FDA-Public Use
  Company Number: US-ABBOTT-11P-163-0724325-00

PATIENT
  Sex: Female
  Weight: 53.118 kg

DRUGS (7)
  1. BUSPAR [Concomitant]
     Indication: ANXIETY
  2. VICOPROFEN [Concomitant]
     Indication: PAIN
     Dosage: 7.5/20 MG AS NEEDED
  3. LUNESTA [Concomitant]
  4. HUMIRA [Suspect]
     Indication: ANKYLOSING SPONDYLITIS
     Route: 050
     Dates: start: 20080601
  5. XYZAL [Concomitant]
     Indication: HYPERSENSITIVITY
  6. MEDROL [Concomitant]
     Indication: ANKYLOSING SPONDYLITIS
     Dosage: TAPER OVER 9 MONTHS
     Dates: start: 20100101, end: 20110101
  7. LUNESTA [Concomitant]
     Indication: INSOMNIA
     Dosage: Q HS

REACTIONS (6)
  - FATIGUE [None]
  - PAPULE [None]
  - BUTTERFLY RASH [None]
  - RASH ERYTHEMATOUS [None]
  - LUPUS-LIKE SYNDROME [None]
  - PAIN IN EXTREMITY [None]
